FAERS Safety Report 4303287-9 (Version None)
Quarter: 2004Q1

REPORT INFORMATION
  Report Type: 
  Country: None (occurrence: None)
  Receive Date: 20040223
  Receipt Date: 20040212
  Transmission Date: 20041129
  Serious: Yes (Death, Other)
  Sender: FDA-Public Use
  Company Number: 2004198810DE

PATIENT
  Age: 18 Year
  Sex: Male

DRUGS (3)
  1. ZYVOX [Suspect]
  2. DIFLUCAN [Suspect]
  3. IMMUNOSUPPRESSIVE AGENTS [Concomitant]

REACTIONS (1)
  - HEPATIC FAILURE [None]
